FAERS Safety Report 11322402 (Version 1)
Quarter: 2015Q3

REPORT INFORMATION
  Report Type: Spontaneous
  Country: US (occurrence: None)
  Receive Date: 20150728
  Receipt Date: 20150728
  Transmission Date: 20151125
  Serious: Yes (Other)
  Sender: FDA-Public Use
  Company Number: 001954135A

PATIENT
  Age: 30 Year
  Sex: Female

DRUGS (4)
  1. MEANINGFUL BEAUTY CINDY CRAWFORD SKIN BRIGHTENING DECOLLETE AND NECK TREATMENT SPF 15 [Suspect]
     Active Substance: AVOBENZONE\OCTINOXATE\OCTISALATE\OXYBENZONE
     Indication: SUNBURN
     Route: 061
     Dates: start: 201502, end: 20150511
  2. MEANINGFUL BEAUTY CINDY CRAWFORD SKIN BRIGHTENING DECOLLETE AND NECK TREATMENT SPF 15 [Suspect]
     Active Substance: AVOBENZONE\OCTINOXATE\OCTISALATE\OXYBENZONE
     Indication: PROPHYLAXIS
     Route: 061
     Dates: start: 201502, end: 20150511
  3. MEANINGFUL BEAUTY CINDY CRAWFORD ANTIOXIDANT SPF 20 UVA/UVB [Suspect]
     Active Substance: AVOBENZONE\OCTINOXATE\OCTISALATE\OXYBENZONE
     Indication: PROPHYLAXIS
     Route: 061
     Dates: start: 201502, end: 20150511
  4. MEANINGFUL BEAUTY CINDY CRAWFORD ANTIOXIDANT SPF 20 UVA/UVB [Suspect]
     Active Substance: AVOBENZONE\OCTINOXATE\OCTISALATE\OXYBENZONE
     Indication: SUNBURN
     Route: 061
     Dates: start: 201502, end: 20150511

REACTIONS (3)
  - Face oedema [None]
  - Dyspnoea [None]
  - Erythema [None]

NARRATIVE: CASE EVENT DATE: 20150511
